FAERS Safety Report 20404905 (Version 1)
Quarter: 2022Q1

REPORT INFORMATION
  Report Type: Report from Study
  Country: GB (occurrence: GB)
  Receive Date: 20220131
  Receipt Date: 20220131
  Transmission Date: 20220423
  Serious: Yes (Other)
  Sender: FDA-Public Use
  Company Number: GB-NOVARTISPH-NVSC2022GB017158

PATIENT
  Sex: Male

DRUGS (1)
  1. OMNITROPE [Suspect]
     Active Substance: SOMATROPIN
     Indication: Prolactin-producing pituitary tumour
     Dosage: 0.4 MG, 1 D
     Route: 065

REACTIONS (5)
  - Neoplasm malignant [Unknown]
  - Neoplasm [Unknown]
  - Hormone level abnormal [Unknown]
  - Fatigue [Unknown]
  - Migraine [Unknown]
